FAERS Safety Report 18501797 (Version 11)
Quarter: 2025Q3

REPORT INFORMATION
  Report Type: Report from Study
  Country: US (occurrence: US)
  Receive Date: 20201113
  Receipt Date: 20250825
  Transmission Date: 20251020
  Serious: Yes (Hospitalization, Other)
  Sender: TAKEDA
  Company Number: US-TAKEDA-2019TUS073797

PATIENT
  Sex: Female

DRUGS (24)
  1. PONATINIB [Suspect]
     Active Substance: PONATINIB
     Indication: Chronic myeloid leukaemia
     Dosage: 45 MILLIGRAM, QD
  2. PONATINIB [Suspect]
     Active Substance: PONATINIB
     Indication: Chronic myeloid leukaemia recurrent
     Dosage: 15 MILLIGRAM, QD
  3. PONATINIB [Suspect]
     Active Substance: PONATINIB
     Dosage: 15 MILLIGRAM, QD
  4. PONATINIB [Suspect]
     Active Substance: PONATINIB
     Dosage: 15 MILLIGRAM, QD
  5. PONATINIB [Suspect]
     Active Substance: PONATINIB
     Dosage: 15 MILLIGRAM, QD
  6. PONATINIB [Suspect]
     Active Substance: PONATINIB
     Dosage: 15 MILLIGRAM, QD
  7. TACROLIMUS [Concomitant]
     Active Substance: TACROLIMUS
  8. AMLODIPINE BESYLATE\ATORVASTATIN CALCIUM [Concomitant]
     Active Substance: AMLODIPINE BESYLATE\ATORVASTATIN CALCIUM
  9. BIOTIN [Concomitant]
     Active Substance: BIOTIN
  10. CITALOPRAM [Concomitant]
     Active Substance: CITALOPRAM
  11. SENNA [Concomitant]
     Active Substance: SENNOSIDES
  12. ASPIRIN [Concomitant]
     Active Substance: ASPIRIN
  13. TRAMADOL HCL [Concomitant]
     Active Substance: TRAMADOL HYDROCHLORIDE
  14. HYDROCHLOROTHIAZIDE [Concomitant]
     Active Substance: HYDROCHLOROTHIAZIDE
  15. ROSUVASTATIN CALCIUM [Concomitant]
     Active Substance: ROSUVASTATIN CALCIUM
  16. VALSARTAN [Concomitant]
     Active Substance: VALSARTAN
  17. ZYRTEC [Concomitant]
     Active Substance: CETIRIZINE HYDROCHLORIDE
  18. BENADRYL ALLERGY [Concomitant]
     Active Substance: DIPHENHYDRAMINE HYDROCHLORIDE
  19. PREDNISONE [Concomitant]
     Active Substance: PREDNISONE
  20. MONTELUKAST SODIUM [Concomitant]
     Active Substance: MONTELUKAST SODIUM
  21. FAMOTIDINE [Concomitant]
     Active Substance: FAMOTIDINE
  22. ASPIRIN [Concomitant]
     Active Substance: ASPIRIN
  23. AMLODIPINE BESYLATE [Concomitant]
     Active Substance: AMLODIPINE BESYLATE
  24. PANTOPRAZOLE SODIUM [Concomitant]
     Active Substance: PANTOPRAZOLE SODIUM

REACTIONS (23)
  - Urticaria [Unknown]
  - Renal impairment [Unknown]
  - Product dose omission issue [Unknown]
  - Product use issue [Unknown]
  - Blood pressure increased [Unknown]
  - Blood glucose increased [Unknown]
  - Vomiting [Unknown]
  - Spinal pain [Unknown]
  - Joint swelling [Unknown]
  - Fall [Unknown]
  - Gait disturbance [Unknown]
  - Hypotension [Recovered/Resolved]
  - Pain in extremity [Unknown]
  - Dizziness [Recovered/Resolved]
  - Bone pain [Unknown]
  - Muscle spasms [Unknown]
  - Burning sensation [Unknown]
  - Contusion [Unknown]
  - Peripheral swelling [Unknown]
  - Blood cholesterol increased [Unknown]
  - Fatigue [Unknown]
  - Arthralgia [Unknown]
  - Pain [Unknown]
